FAERS Safety Report 10884354 (Version 7)
Quarter: 2015Q3

REPORT INFORMATION
  Report Type: Spontaneous
  Country: JP (occurrence: JP)
  Receive Date: 20150304
  Receipt Date: 20150720
  Transmission Date: 20151125
  Serious: Yes (Death, Life-Threatening, Hospitalization)
  Sender: FDA-Public Use
  Company Number: JP-BRISTOL-MYERS SQUIBB COMPANY-BMS-2015-012355

PATIENT
  Age: 54 Year
  Sex: Female

DRUGS (6)
  1. METGLUCO [Suspect]
     Active Substance: METFORMIN HYDROCHLORIDE
     Indication: DIABETES MELLITUS
     Dosage: 500 MG, TID
     Route: 048
     Dates: end: 20150213
  2. FLUTICASONE FUROATE W/VILANTEROL TRIFENATATE [Concomitant]
     Indication: ASTHMA
     Dosage: 20 ?G, UNK
     Route: 048
     Dates: end: 20150213
  3. EVAMYL [Concomitant]
     Active Substance: LORMETAZEPAM
     Indication: INSOMNIA
     Dosage: UNK
     Route: 048
     Dates: start: 20150213
  4. JANUVIA [Concomitant]
     Active Substance: SITAGLIPTIN PHOSPHATE
     Indication: DIABETES MELLITUS
     Dosage: 200 MG, UNK
     Route: 048
     Dates: end: 20150213
  5. NOVORAPID [Concomitant]
     Active Substance: INSULIN ASPART
     Indication: DIABETES MELLITUS
     Route: 058
  6. SOLANAX [Concomitant]
     Active Substance: ALPRAZOLAM
     Indication: NEUROSIS
     Dosage: UNK
     Route: 048
     Dates: start: 20150213

REACTIONS (3)
  - Enteritis infectious [Not Recovered/Not Resolved]
  - Renal impairment [Not Recovered/Not Resolved]
  - Diabetic ketoacidosis [Fatal]

NARRATIVE: CASE EVENT DATE: 20150211
